FAERS Safety Report 9284597 (Version 1)
Quarter: 2013Q2

REPORT INFORMATION
  Report Type: Spontaneous
  Country: AU (occurrence: AU)
  Receive Date: 20130512
  Receipt Date: 20130512
  Transmission Date: 20140414
  Serious: Yes (Hospitalization, Other)
  Sender: FDA-Public Use
  Company Number: AU-009507513-1305AUS003222

PATIENT
  Age: 65 Year
  Sex: Male

DRUGS (8)
  1. AVANZA [Suspect]
     Dosage: 30 MG, DAILY
     Route: 048
  2. OLANZAPINE [Suspect]
     Dosage: 8 MG, DAILY
     Route: 048
  3. ARGININE HYDROCHLORIDE [Concomitant]
  4. ASPIRIN [Concomitant]
  5. ATORVASTATIN [Concomitant]
  6. CHOLECALCIFEROL [Concomitant]
  7. EZETIMIBE [Concomitant]
     Route: 048
  8. METFORMIN HYDROCHLORIDE [Concomitant]

REACTIONS (1)
  - Neuroleptic malignant syndrome [Not Recovered/Not Resolved]
